FAERS Safety Report 19457047 (Version 1)
Quarter: 2021Q2

REPORT INFORMATION
  Report Type: Other
  Country: CN (occurrence: CN)
  Receive Date: 20210624
  Receipt Date: 20210624
  Transmission Date: 20210717
  Serious: Yes (Life-Threatening, Other)
  Sender: FDA-Public Use
  Company Number: CN-ASTELLAS-2021US022955

PATIENT
  Age: 2 Year
  Sex: Female
  Weight: 12 kg

DRUGS (1)
  1. PROGRAF [Suspect]
     Active Substance: TACROLIMUS
     Indication: PROPHYLAXIS AGAINST TRANSPLANT REJECTION
     Dosage: 0.5 MG, TWICE DAILY
     Route: 048
     Dates: start: 20200812, end: 20210122

REACTIONS (7)
  - Oxygen saturation decreased [Recovering/Resolving]
  - Tremor [Unknown]
  - Pupillary reflex impaired [Unknown]
  - Respiration abnormal [Unknown]
  - Depressed level of consciousness [Recovering/Resolving]
  - Feeling jittery [Recovering/Resolving]
  - Cyanosis [Unknown]

NARRATIVE: CASE EVENT DATE: 20201212
